FAERS Safety Report 8972882 (Version 2)
Quarter: 2013Q1

REPORT INFORMATION
  Report Type: Spontaneous
  Country: JP (occurrence: JP)
  Receive Date: 20121219
  Receipt Date: 20130304
  Transmission Date: 20140127
  Serious: Yes (Death)
  Sender: FDA-Public Use
  Company Number: JP-NAPPMUNDI-GBR-2012-0012352

PATIENT
  Age: 80 Year
  Sex: Male

DRUGS (6)
  1. BUPRENORPHINE TRANSDERMAL SYSTEM [Suspect]
     Indication: BACK PAIN
     Dosage: 10 MCG, Q1H
     Route: 062
     Dates: start: 20121103
  2. BUPRENORPHINE TRANSDERMAL SYSTEM [Suspect]
     Indication: OSTEOARTHRITIS
     Dosage: 5 MCG, Q1H
     Route: 062
     Dates: start: 201211
  3. BUPRENORPHINE TRANSDERMAL SYSTEM [Suspect]
     Dosage: UNK
     Route: 062
  4. HALCION [Concomitant]
  5. PRORENAL [Concomitant]
  6. NAUZELIN [Concomitant]

REACTIONS (1)
  - Cardiac failure [Fatal]
